FAERS Safety Report 22162419 (Version 2)
Quarter: 2023Q2

REPORT INFORMATION
  Report Type: Report from Study
  Country: BR (occurrence: BR)
  Receive Date: 20230331
  Receipt Date: 20230403
  Transmission Date: 20230722
  Serious: Yes (Death, Hospitalization, Other)
  Sender: FDA-Public Use
  Company Number: BR-TAKEDA-2021TUS074679

PATIENT
  Age: 57 Year
  Sex: Male
  Weight: 43 kg

DRUGS (12)
  1. PANTOPRAZOLE [Suspect]
     Active Substance: PANTOPRAZOLE
     Dosage: 40 MILLIGRAM
     Route: 065
  2. MOBOCERTINIB [Suspect]
     Active Substance: MOBOCERTINIB
     Indication: Non-small cell lung cancer
     Dosage: 160 MILLIGRAM, QD
     Route: 048
     Dates: start: 20210218, end: 20210401
  3. MOBOCERTINIB [Suspect]
     Active Substance: MOBOCERTINIB
     Dosage: 120 MILLIGRAM, QD
     Route: 065
     Dates: start: 20210401, end: 20211019
  4. TYLENOL [Concomitant]
     Active Substance: ACETAMINOPHEN
     Dosage: UNK
     Route: 048
  5. LOPERAMIDE [Concomitant]
     Active Substance: LOPERAMIDE
     Dosage: UNK, QD
     Route: 048
  6. RACECADOTRIL [Concomitant]
     Active Substance: RACECADOTRIL
     Dosage: UNK, QD
     Route: 048
  7. ONDANSETRON [Concomitant]
     Active Substance: ONDANSETRON
     Dosage: 8 MILLIGRAM
     Route: 048
  8. SODIUM CHLORIDE [Concomitant]
     Active Substance: SODIUM CHLORIDE
     Dosage: 1 GRAM
     Route: 048
  9. DECADRON [Concomitant]
     Active Substance: DEXAMETHASONE
     Dosage: 4 MILLIGRAM
     Route: 048
  10. DULCOLAX (BISACODYL) [Concomitant]
     Active Substance: BISACODYL
     Dosage: 5 MILLIGRAM
     Route: 048
  11. FLORINEFE [Concomitant]
     Dosage: 5 MILLIGRAM
     Route: 048
  12. CYCLOBENZAPRINE [Concomitant]
     Active Substance: CYCLOBENZAPRINE
     Dosage: 5 MILLIGRAM
     Route: 048

REACTIONS (15)
  - Death [Fatal]
  - Neurological symptom [Unknown]
  - Nausea [Unknown]
  - Vomiting [Unknown]
  - Dizziness [Unknown]
  - Meningeal disorder [Unknown]
  - Non-small cell lung cancer [Unknown]
  - Nervous system disorder [Unknown]
  - COVID-19 [Unknown]
  - Confusional state [Unknown]
  - Toxicity to various agents [Unknown]
  - Diarrhoea [Unknown]
  - Condition aggravated [Unknown]
  - Paronychia [Unknown]
  - Onycholysis [Unknown]

NARRATIVE: CASE EVENT DATE: 20211027
